FAERS Safety Report 8653857 (Version 4)
Quarter: 2013Q1

REPORT INFORMATION
  Report Type: Report from Study
  Country: DK (occurrence: DK)
  Receive Date: 20120709
  Receipt Date: 20130115
  Transmission Date: 20140127
  Serious: Yes (Hospitalization, Other)
  Sender: FDA-Public Use
  Company Number: DK-JNJFOC-20120614077

PATIENT
  Age: 30 Year
  Sex: Female
  Weight: 57 kg

DRUGS (12)
  1. REMICADE [Suspect]
     Indication: COLITIS ULCERATIVE
     Dosage: EVERY 7-8 WEEKS
     Route: 042
     Dates: start: 20101213
  2. REMICADE [Suspect]
     Indication: COLITIS ULCERATIVE
     Dosage: EVERY 7-8 WEEKS
     Route: 042
     Dates: start: 20101227
  3. REMICADE [Suspect]
     Indication: COLITIS ULCERATIVE
     Dosage: EVERY 7-8 WEEKS
     Route: 042
     Dates: start: 20110124
  4. REMICADE [Suspect]
     Indication: COLITIS ULCERATIVE
     Dosage: EVERY 7-8 WEEKS
     Route: 042
     Dates: start: 20110304
  5. REMICADE [Suspect]
     Indication: COLITIS ULCERATIVE
     Dosage: EVERY 7-8 WEEKS
     Route: 042
     Dates: start: 20110411
  6. REMICADE [Suspect]
     Indication: COLITIS ULCERATIVE
     Dosage: EVERY 7-8 WEEKS
     Route: 042
     Dates: start: 20110523
  7. REMICADE [Suspect]
     Indication: COLITIS ULCERATIVE
     Dosage: EVERY 7-8 WEEKS
     Route: 042
     Dates: start: 20110711
  8. REMICADE [Suspect]
     Indication: COLITIS ULCERATIVE
     Dosage: EVERY 7-8 WEEKS
     Route: 042
     Dates: start: 20110905
  9. REMICADE [Suspect]
     Indication: COLITIS ULCERATIVE
     Dosage: EVERY 7-8 WEEKS
     Route: 042
     Dates: start: 20111018
  10. REMICADE [Suspect]
     Indication: COLITIS ULCERATIVE
     Dosage: EVERY 7-8 WEEKS
     Route: 042
     Dates: start: 20111128
  11. REMICADE [Suspect]
     Indication: COLITIS ULCERATIVE
     Dosage: EVERY 7-8 WEEKS
     Route: 042
     Dates: start: 20120123, end: 20120305
  12. ASACOL [Concomitant]
     Indication: COLITIS ULCERATIVE
     Route: 048

REACTIONS (2)
  - Abortion spontaneous [Recovered/Resolved]
  - Exposure during pregnancy [Recovered/Resolved]
